FAERS Safety Report 20444733 (Version 1)
Quarter: 2022Q1

REPORT INFORMATION
  Report Type: Spontaneous
  Country: US (occurrence: US)
  Receive Date: 20220208
  Receipt Date: 20220208
  Transmission Date: 20220423
  Serious: No
  Sender: FDA-Public Use
  Company Number: US-CELGENE-USA-20220201149

PATIENT
  Sex: Female
  Weight: 86.260 kg

DRUGS (3)
  1. REVLIMID [Suspect]
     Active Substance: LENALIDOMIDE
     Indication: Plasma cell myeloma
     Dosage: 15 MILLIGRAM
     Route: 048
     Dates: start: 20191207, end: 20220201
  2. REVLIMID [Suspect]
     Active Substance: LENALIDOMIDE
     Dosage: 25 MILLIGRAM
     Route: 048
     Dates: start: 201912
  3. REVLIMID [Suspect]
     Active Substance: LENALIDOMIDE
     Dosage: 15 MILLIGRAM
     Route: 048
     Dates: start: 202009

REACTIONS (1)
  - Plasma cell myeloma [Not Recovered/Not Resolved]
